FAERS Safety Report 18250669 (Version 1)
Quarter: 2020Q3

REPORT INFORMATION
  Report Type: Spontaneous
  Country: US (occurrence: US)
  Receive Date: 20200909
  Receipt Date: 20200909
  Transmission Date: 20201103
  Serious: Yes (Other)
  Sender: FDA-Public Use
  Company Number: US-PURDUE-USA-2020-0165214

PATIENT
  Sex: Male

DRUGS (3)
  1. OXYCONTIN [Suspect]
     Active Substance: OXYCODONE HYDROCHLORIDE
     Indication: PRODUCT USED FOR UNKNOWN INDICATION
     Dosage: 10 MG, UNK
     Route: 048
  2. OXYCODONE HYDROCHLORIDE (SIMILAR TO NDA 22?272) [Suspect]
     Active Substance: OXYCODONE HYDROCHLORIDE
     Indication: PRODUCT USED FOR UNKNOWN INDICATION
     Dosage: 10 MG, UNK
     Route: 065
  3. DILAUDID [Suspect]
     Active Substance: HYDROMORPHONE HYDROCHLORIDE
     Indication: PRODUCT USED FOR UNKNOWN INDICATION
     Dosage: UNK
     Route: 048

REACTIONS (17)
  - Major depression [Unknown]
  - Pruritus [Unknown]
  - Vision blurred [Unknown]
  - Constipation [Unknown]
  - Myoclonus [Not Recovered/Not Resolved]
  - Dry throat [Unknown]
  - Mood swings [Unknown]
  - Abdominal pain [Unknown]
  - Heart rate increased [Unknown]
  - Headache [Unknown]
  - Vomiting [Unknown]
  - Dependence [Unknown]
  - Oral pain [Unknown]
  - Dyspnoea [Unknown]
  - Nausea [Unknown]
  - Hyperhidrosis [Unknown]
  - Movement disorder [Unknown]
